FAERS Safety Report 17016515 (Version 1)
Quarter: 2019Q4

REPORT INFORMATION
  Report Type: Spontaneous
  Country: US (occurrence: US)
  Receive Date: 20191004
  Receipt Date: 20191004
  Transmission Date: 20200122
  Serious: Yes (Hospitalization)
  Sender: FDA-Public Use
  Company Number: None

PATIENT
  Age: 65 Year
  Sex: Female
  Weight: 72.5 kg

DRUGS (2)
  1. BEVACIZUMAB (RHYMAB VEGF) [Suspect]
     Active Substance: BEVACIZUMAB
     Dates: end: 20190508
  2. DOXIL [Suspect]
     Active Substance: DOXORUBICIN HYDROCHLORIDE
     Dates: end: 20190508

REACTIONS (4)
  - Nausea [None]
  - Gastritis [None]
  - Haematemesis [None]
  - Vomiting [None]

NARRATIVE: CASE EVENT DATE: 20190511
